FAERS Safety Report 12115793 (Version 2)
Quarter: 2016Q1

REPORT INFORMATION
  Report Type: Spontaneous
  Country: US (occurrence: US)
  Receive Date: 20160225
  Receipt Date: 20160226
  Transmission Date: 20160526
  Serious: No
  Sender: FDA-Public Use
  Company Number: US-TEVA-637322USA

PATIENT

DRUGS (1)
  1. NUVIGIL [Suspect]
     Active Substance: ARMODAFINIL
     Indication: BIPOLAR DISORDER

REACTIONS (2)
  - Product use issue [Unknown]
  - Drug effect decreased [Unknown]
